FAERS Safety Report 12731540 (Version 1)
Quarter: 2016Q3

REPORT INFORMATION
  Report Type: Spontaneous
  Country: US (occurrence: US)
  Receive Date: 20160912
  Receipt Date: 20160912
  Transmission Date: 20161109
  Serious: No
  Sender: FDA-Public Use
  Company Number: US-TEVA-669354USA

PATIENT
  Age: 66 Year
  Sex: Female
  Weight: 49.94 kg

DRUGS (1)
  1. DULOXETINE. [Suspect]
     Active Substance: DULOXETINE
     Route: 065
     Dates: start: 20160523

REACTIONS (6)
  - Headache [Unknown]
  - Drug dose omission [Unknown]
  - Dizziness [Unknown]
  - Fatigue [Unknown]
  - Asthenia [Unknown]
  - Feeling abnormal [Unknown]

NARRATIVE: CASE EVENT DATE: 20160524
